FAERS Safety Report 16925330 (Version 1)
Quarter: 2019Q4

REPORT INFORMATION
  Report Type: Spontaneous
  Country: US (occurrence: US)
  Receive Date: 20191016
  Receipt Date: 20191016
  Transmission Date: 20200122
  Serious: Yes (Other)
  Sender: FDA-Public Use
  Company Number: US-VIIV HEALTHCARE LIMITED-US2019AMR184813

PATIENT
  Sex: Female

DRUGS (1)
  1. AZT [Suspect]
     Active Substance: ZIDOVUDINE
     Indication: HIV INFECTION
     Dosage: UNK
     Route: 065

REACTIONS (8)
  - Neuropathy peripheral [Unknown]
  - Lipodystrophy acquired [Unknown]
  - Depression [Unknown]
  - Arthritis [Unknown]
  - Facial wasting [Unknown]
  - Transfusion [Unknown]
  - Asthma [Unknown]
  - Diverticulum [Unknown]
